FAERS Safety Report 5649550-0 (Version None)
Quarter: 2008Q1

REPORT INFORMATION
  Report Type: 
  Country: None (occurrence: None)
  Receive Date: 20080304
  Receipt Date: 20080221
  Transmission Date: 20080703
  Serious: Yes (Hospitalization, Other)
  Sender: FDA-Public Use
  Company Number: JP-BRISTOL-MYERS SQUIBB COMPANY-14076640

PATIENT
  Age: 66 Year
  Sex: Male
  Weight: 64 kg

DRUGS (13)
  1. SPRYCEL [Suspect]
     Indication: CHRONIC MYELOID LEUKAEMIA
     Dosage: (70MG BID)01AUG06;(DECRESED TO 50MG BID)17OCT06-UNK;RESTARTED 0N 22JAN07
     Route: 048
     Dates: start: 20061017, end: 20080213
  2. HYALEIN [Concomitant]
     Indication: DRY EYE
     Dosage: FORM-EED;START DATE-ABOUT BEFOREHAND
     Route: 047
  3. LOMEFLOXACIN HCL [Concomitant]
     Indication: EYE DISCHARGE
     Dosage: FORM-EED;START DATE-ABOUT BEFOREHAND
     Route: 047
  4. ALOSITOL [Concomitant]
     Indication: HYPERURICAEMIA
     Dosage: FORM-TAB;START DATE-ABOUT BEFOREHAND
     Route: 048
  5. EXCELASE [Concomitant]
     Indication: ABDOMINAL PAIN UPPER
     Dosage: 3 DOSAGE FORM=3 CAPS;START DATE-ABOUT BEFOREHAND
     Route: 048
  6. MUCOSTA [Concomitant]
     Indication: ABDOMINAL PAIN UPPER
     Dosage: FORM-TAB;START DATE-ABOUT BEFOREHAND
     Route: 048
  7. OXAROL [Concomitant]
     Indication: RASH PAPULAR
     Dosage: FORM-OIT;START DATE-ABOUT BEFOREHAND
     Route: 061
  8. POSTERISAN FORTE [Concomitant]
     Indication: PROPHYLAXIS
     Dosage: FORM-OIT;STRART DATE-ABOUT BEFOREHAND 2-4 MG
     Route: 061
  9. PANTOSIN [Concomitant]
     Indication: PROPHYLAXIS
     Dosage: START DATE- ABOUT BEFOREHAND 2-3G
     Route: 048
  10. MAGNESIUM OXIDE [Concomitant]
     Indication: PROPHYLAXIS
     Dosage: START DATE-ABOUT BEFORE HAND 1-1.5G
     Route: 048
  11. ALPROSTADIL [Concomitant]
     Indication: SKIN ULCER
     Dosage: FORM-OTT
     Route: 061
     Dates: start: 20080213
  12. RED BLOOD CELLS [Concomitant]
     Indication: SUPPLEMENTATION THERAPY
     Dosage: 2 UNITS: 13-FEB-2008, 14-FEB-2008, 15-FEB-2008, 21-FEB-2008
     Dates: start: 20080213, end: 20080221
  13. PROVIDONE IODINE [Concomitant]
     Indication: INFECTION PROPHYLAXIS

REACTIONS (3)
  - COLON CANCER [None]
  - HAEMATOMA [None]
  - HAEMOGLOBIN DECREASED [None]
